FAERS Safety Report 7417052-7 (Version None)
Quarter: 2011Q2

REPORT INFORMATION
  Report Type: 
  Country: None (occurrence: None)
  Receive Date: 20110415
  Receipt Date: 20091031
  Transmission Date: 20111010
  Serious: Yes (Death, Other)
  Sender: FDA-Public Use
  Company Number: US-BAYER-200937739NA

PATIENT
  Age: 78 Year
  Sex: Male
  Weight: 58.957 kg

DRUGS (22)
  1. LIPITOR [Concomitant]
     Indication: HYPERLIPIDAEMIA
     Dosage: 40 MG, QD
     Route: 048
  2. LASIX [Concomitant]
     Dosage: 40 MG/HR, DRIP
     Dates: start: 20001115
  3. TRASYLOL [Suspect]
     Indication: AORTIC VALVE INCOMPETENCE
     Dosage: 2CC
     Route: 042
     Dates: start: 20001114, end: 20001114
  4. ATENOLOL [Concomitant]
     Indication: HYPERTENSION
     Dosage: 25 MG, QD
     Route: 048
  5. LASIX [Concomitant]
     Dosage: 40 MG, IV PUSH
     Route: 042
     Dates: start: 20001114, end: 20001114
  6. ATENOLOL [Concomitant]
  7. TRASYLOL [Suspect]
     Dosage: 25CC, INFUSION
     Route: 042
     Dates: start: 20001114, end: 20001114
  8. ASPIRIN [Concomitant]
     Dosage: 81 MG, QD
     Route: 048
  9. HEPARIN [Concomitant]
  10. PLATELETS [Concomitant]
     Dosage: 12 U, UNK
     Route: 042
     Dates: start: 20001114
  11. NITROSTAT [Concomitant]
     Indication: CHEST PAIN
     Dosage: 0.4 MG, UNK
  12. VIOXX [Concomitant]
     Dosage: 40 MG, UNK
     Dates: start: 20000807
  13. CYCLOBENZAPRINE [Concomitant]
     Dosage: 10 MG, UNK
     Route: 048
     Dates: start: 20000807
  14. DEMEROL [Concomitant]
     Indication: PAIN
  15. TRASYLOL [Suspect]
     Dosage: 100CC
     Route: 042
     Dates: start: 20001114, end: 20001114
  16. LIDOCAINE [Concomitant]
  17. LASIX [Concomitant]
     Dosage: 40 MG/HR, DRIP
     Dates: start: 20001115
  18. GENTAMICIN [Concomitant]
     Dosage: 1 MG, UNK
     Route: 042
     Dates: start: 20001114, end: 20001116
  19. RED BLOOD CELLS [Concomitant]
     Dosage: 4 U, UNK
     Route: 042
     Dates: start: 20001114
  20. CRYOPRECIPITATES [Concomitant]
     Dosage: 3 U, UNK
     Route: 042
     Dates: start: 20001114
  21. PERCOCET [Concomitant]
     Indication: PAIN
  22. ACETAMINOPHEN [Concomitant]
     Indication: PAIN

REACTIONS (7)
  - PAIN [None]
  - RENAL FAILURE [None]
  - INJURY [None]
  - DEATH [None]
  - RENAL INJURY [None]
  - UNEVALUABLE EVENT [None]
  - RENAL FAILURE ACUTE [None]
